FAERS Safety Report 5875482-9 (Version None)
Quarter: 2008Q3

REPORT INFORMATION
  Report Type: 
  Country: None (occurrence: None)
  Receive Date: 20080909
  Receipt Date: 20080828
  Transmission Date: 20090109
  Serious: Yes (Other)
  Sender: FDA-Public Use
  Company Number: FR-JNJCH-2008023122

PATIENT
  Sex: Female

DRUGS (2)
  1. CETIRIZINE HYDROCHLORIDE [Suspect]
     Indication: ANTIALLERGIC THERAPY
     Route: 048
     Dates: start: 20080801, end: 20080801
  2. BLINDED [Suspect]
     Indication: GASTROOESOPHAGEAL REFLUX DISEASE
     Dosage: TEXT:UNK2
     Route: 048
     Dates: start: 20080616, end: 20080715

REACTIONS (1)
  - ANGIOEDEMA [None]
